FAERS Safety Report 17266910 (Version 1)
Quarter: 2020Q1

REPORT INFORMATION
  Report Type: Spontaneous
  Country: AR (occurrence: AR)
  Receive Date: 20200114
  Receipt Date: 20200114
  Transmission Date: 20200409
  Serious: Yes (Other)
  Sender: FDA-Public Use
  Company Number: AR-PFIZER INC-2020012868

PATIENT
  Age: 37 Year
  Sex: Female

DRUGS (2)
  1. TALZENNA [Suspect]
     Active Substance: TALAZOPARIB TOSYLATE
     Dosage: 1 MG, 1X/DAY
     Dates: start: 201911
  2. TALZENNA [Suspect]
     Active Substance: TALAZOPARIB TOSYLATE
     Indication: BREAST CANCER METASTATIC
     Dosage: 1 MG, 1X/DAY
     Dates: start: 20191025, end: 201911

REACTIONS (7)
  - Mouth haemorrhage [Recovered/Resolved]
  - Haemorrhage [Recovered/Resolved]
  - White blood cell count decreased [Recovered/Resolved]
  - Vascular rupture [Recovered/Resolved]
  - Decreased immune responsiveness [Recovered/Resolved]
  - Pneumonia [Recovered/Resolved]
  - Epistaxis [Recovered/Resolved]

NARRATIVE: CASE EVENT DATE: 201911
